FAERS Safety Report 23014364 (Version 1)
Quarter: 2023Q4

REPORT INFORMATION
  Report Type: Spontaneous
  Country: US (occurrence: US)
  Receive Date: 20231002
  Receipt Date: 20231002
  Transmission Date: 20240110
  Serious: No
  Sender: FDA-Public Use
  Company Number: US-ABBVIE-5428174

PATIENT
  Age: 77 Year
  Sex: Female

DRUGS (3)
  1. FML [Suspect]
     Active Substance: FLUOROMETHOLONE
     Indication: Lacrimation decreased
     Dosage: 1 DROP
     Route: 047
     Dates: start: 20230927
  2. FML [Suspect]
     Active Substance: FLUOROMETHOLONE
     Dosage: 1 DROP
     Route: 047
     Dates: start: 20230925, end: 20230926
  3. FML [Suspect]
     Active Substance: FLUOROMETHOLONE
     Dosage: TIME INTERVAL: 0.33333333 DAYS: 1 DROP
     Route: 047
     Dates: start: 20230906, end: 202309

REACTIONS (2)
  - Dizziness [Recovered/Resolved]
  - Vertigo positional [Not Recovered/Not Resolved]

NARRATIVE: CASE EVENT DATE: 20230906
